FAERS Safety Report 25100555 (Version 1)
Quarter: 2025Q1

REPORT INFORMATION
  Report Type: Spontaneous
  Country: US (occurrence: US)
  Receive Date: 20250320
  Receipt Date: 20250320
  Transmission Date: 20250408
  Serious: Yes (Life-Threatening, Other)
  Sender: REGENERON
  Company Number: US-REGENERON PHARMACEUTICALS, INC.-2025-050920

PATIENT
  Age: 69 Year
  Sex: Male

DRUGS (1)
  1. CEMIPLIMAB [Suspect]
     Active Substance: CEMIPLIMAB
     Indication: Squamous cell carcinoma of skin
     Dates: start: 2025

REACTIONS (4)
  - Myocarditis [Recovering/Resolving]
  - Myasthenia gravis [Unknown]
  - Hepatitis [Unknown]
  - Myositis [Unknown]

NARRATIVE: CASE EVENT DATE: 20250101
